FAERS Safety Report 10970802 (Version 3)
Quarter: 2015Q2

REPORT INFORMATION
  Report Type: Spontaneous
  Country: JP (occurrence: JP)
  Receive Date: 20150331
  Receipt Date: 20150519
  Transmission Date: 20150821
  Serious: Yes (Hospitalization)
  Sender: FDA-Public Use
  Company Number: JP-ASTRAZENECA-2015SE21725

PATIENT
  Age: 60 Year
  Sex: Male
  Weight: 72 kg

DRUGS (5)
  1. CRESTOR [Suspect]
     Active Substance: ROSUVASTATIN CALCIUM
     Indication: HYPERCHOLESTEROLAEMIA
     Route: 048
     Dates: start: 20061120, end: 20141205
  2. EPADEL [Concomitant]
     Active Substance: ICOSAPENT
     Dosage: DOSE UNKNOWN
     Route: 065
  3. PLAVIX [Concomitant]
     Active Substance: CLOPIDOGREL BISULFATE
     Indication: CEREBRAL INFARCTION
     Route: 048
     Dates: start: 20061120
  4. NORVASC [Concomitant]
     Active Substance: AMLODIPINE BESYLATE
     Indication: HYPERTENSION
     Route: 048
     Dates: start: 20121129
  5. TANATRIL [Concomitant]
     Active Substance: IMIDAPRIL
     Indication: HYPERTENSION
     Route: 048
     Dates: start: 20120507

REACTIONS (4)
  - Urinary incontinence [Recovered/Resolved]
  - Rhabdomyolysis [Recovered/Resolved]
  - Pyelonephritis acute [Recovered/Resolved]
  - Cholecystitis acute [Recovered/Resolved]

NARRATIVE: CASE EVENT DATE: 20141203
